FAERS Safety Report 4885260-5 (Version None)
Quarter: 2006Q1

REPORT INFORMATION
  Report Type: 
  Country: None (occurrence: None)
  Receive Date: 20060119
  Receipt Date: 20060109
  Transmission Date: 20060701
  Serious: Yes (Hospitalization)
  Sender: FDA-Public Use
  Company Number: PHRM2006FR00493

PATIENT
  Age: 47 Year
  Sex: Male

DRUGS (3)
  1. LAROXYL [Concomitant]
  2. KETAMINE HCL [Concomitant]
  3. LIORESAL [Suspect]
     Indication: SUICIDE ATTEMPT
     Dosage: 500 MG, ONCE/SINGLE
     Route: 048
     Dates: start: 20051216, end: 20051216

REACTIONS (8)
  - AGITATION [None]
  - CONFUSIONAL STATE [None]
  - DISORIENTATION [None]
  - HYPOTONIA [None]
  - INTENTIONAL OVERDOSE [None]
  - MUSCLE SPASMS [None]
  - SOMNOLENCE [None]
  - SUICIDE ATTEMPT [None]
